FAERS Safety Report 4653679-3 (Version None)
Quarter: 2005Q2

REPORT INFORMATION
  Report Type: 
  Country: None (occurrence: None)
  Receive Date: 20050505
  Receipt Date: 20050106
  Transmission Date: 20051028
  Serious: Yes (Disabling)
  Sender: FDA-Public Use
  Company Number: PHHO2005JP00571

PATIENT
  Age: 65 Year
  Sex: Male
  Weight: 71 kg

DRUGS (5)
  1. NEORAL [Suspect]
     Indication: RENAL TRANSPLANT
     Route: 048
     Dates: start: 20040310
  2. PREDONINE [Suspect]
     Indication: RENAL TRANSPLANT
     Route: 048
     Dates: start: 20040310
  3. HUMALOG [Concomitant]
  4. HUMACART-N [Concomitant]
  5. FTY720 VS MYCOPHENOLATE MOFETIL [Suspect]
     Indication: RENAL TRANSPLANT
     Dosage: CODE NOT BROKEN
     Route: 048
     Dates: start: 20040310

REACTIONS (6)
  - DIABETIC BULLOSIS [None]
  - DIABETIC GANGRENE [None]
  - EXTREMITY NECROSIS [None]
  - INFECTION [None]
  - OEDEMA PERIPHERAL [None]
  - TOE AMPUTATION [None]
